FAERS Safety Report 9224633 (Version 1)
Quarter: 2013Q1

REPORT INFORMATION
  Report Type: Spontaneous
  Country: US (occurrence: None)
  Receive Date: 20120914
  Receipt Date: 20120914
  Transmission Date: 20140127
  Serious: Yes (Other)
  Sender: FDA-Public Use
  Company Number: JPI-P-020093

PATIENT
  Sex: Male

DRUGS (2)
  1. XYREM (500 MILLIGRAM/MILLILITERS, SOLUTION) (SODIUM OXYBATE) [Suspect]
     Indication: NARCOLEPSY
     Route: 048
     Dates: start: 20040916
  2. MODAFINIL [Concomitant]

REACTIONS (4)
  - Sleep apnoea syndrome [None]
  - Hypertension [None]
  - Drug dose omission [None]
  - Insomnia [None]
